FAERS Safety Report 9095210 (Version 2)
Quarter: 2013Q2

REPORT INFORMATION
  Report Type: Report from Study
  Country: CA (occurrence: CA)
  Receive Date: 20130201
  Receipt Date: 20130507
  Transmission Date: 20140414
  Serious: Yes (Other)
  Sender: FDA-Public Use
  Company Number: CA-ABBOTT-13P-028-1039297-00

PATIENT
  Age: 61 Year
  Sex: Male
  Weight: 124.85 kg

DRUGS (1)
  1. LUPRON DEPOT [Suspect]
     Indication: PROSTATE CANCER
     Dosage: 4 MONTH DEPOT
     Route: 030
     Dates: start: 20120127

REACTIONS (7)
  - General physical health deterioration [Not Recovered/Not Resolved]
  - Metastasis [Not Recovered/Not Resolved]
  - Prostate cancer [Not Recovered/Not Resolved]
  - Clavicle fracture [Unknown]
  - Fracture pain [Unknown]
  - Stress [Unknown]
  - Hypertension [Unknown]
